FAERS Safety Report 10405880 (Version 3)
Quarter: 2015Q1

REPORT INFORMATION
  Report Type: Report from Study
  Country: US (occurrence: US)
  Receive Date: 20140825
  Receipt Date: 20150226
  Transmission Date: 20150720
  Serious: Yes (Other)
  Sender: FDA-Public Use
  Company Number: PHEH2014US016940

PATIENT
  Sex: Male

DRUGS (2)
  1. GLEEVEC [Suspect]
     Active Substance: IMATINIB MESYLATE
     Indication: WHITE BLOOD CELL DISORDER
  2. GLEEVEC [Suspect]
     Active Substance: IMATINIB MESYLATE
     Indication: LYMPHOPROLIFERATIVE DISORDER
     Dosage: 400 MG, QD
     Route: 048

REACTIONS (4)
  - Diabetes mellitus [Unknown]
  - Vision blurred [Unknown]
  - Eye disorder [Unknown]
  - Off label use [Unknown]
